FAERS Safety Report 17195970 (Version 1)
Quarter: 2019Q4

REPORT INFORMATION
  Report Type: Spontaneous
  Country: US (occurrence: US)
  Receive Date: 20191202
  Receipt Date: 20191202
  Transmission Date: 20200122
  Serious: No
  Sender: FDA-Public Use
  Company Number: None

PATIENT
  Age: 64 Year
  Sex: Female
  Weight: 76.2 kg

DRUGS (7)
  1. LEVOTHYROXINE. [Concomitant]
     Active Substance: LEVOTHYROXINE
  2. SUPREP BOWEL PREP [Suspect]
     Active Substance: MAGNESIUM SULFATE\POTASSIUM SULFATE\SODIUM SULFATE
     Indication: COLONOSCOPY
     Dosage: ?          OTHER STRENGTH:17.5G/3.13G/1.6G;QUANTITY:PER 6 OUNCES;OTHER FREQUENCY:1 BOTTLE AROUND 6P;?
     Route: 048
     Dates: start: 20191103, end: 20191103
  3. FISH OIL [Concomitant]
     Active Substance: FISH OIL
  4. PROBIOTIC [Concomitant]
     Active Substance: PROBIOTICS NOS
  5. MULTI VITAMIN [Concomitant]
     Active Substance: VITAMINS
  6. LIOTHYRONINE [Concomitant]
     Active Substance: LIOTHYRONINE
  7. MULTI VITAMIN [Concomitant]
     Active Substance: VITAMINS

REACTIONS (8)
  - Muscle spasms [None]
  - Tremor [None]
  - Vomiting [None]
  - Headache [None]
  - Dehydration [None]
  - Abdominal pain lower [None]
  - Pyrexia [None]
  - Gait inability [None]

NARRATIVE: CASE EVENT DATE: 20191103
